FAERS Safety Report 8244856-3 (Version None)
Quarter: 2012Q1

REPORT INFORMATION
  Report Type: 
  Country: None (occurrence: None)
  Receive Date: 20120329
  Receipt Date: 20110622
  Transmission Date: 20120608
  Serious: No
  Sender: FDA-Public Use
  Company Number: US-MYLANLABS-2011S1013258

PATIENT
  Age: 53 Year
  Sex: Female
  Weight: 70.76 kg

DRUGS (5)
  1. FENTANYL-100 [Suspect]
     Indication: ARTHRALGIA
     Dosage: CHANGED Q48H
     Route: 062
     Dates: start: 20110401
  2. FENTANYL-100 [Suspect]
     Indication: BONE PAIN
     Dosage: CHANGED Q48H
     Route: 062
     Dates: start: 20110401
  3. ZOLOFT [Concomitant]
     Indication: DEPRESSION
     Route: 048
  4. PRILOSEC [Concomitant]
     Indication: GASTROOESOPHAGEAL REFLUX DISEASE
     Route: 048
  5. LISINOPRIL [Concomitant]
     Indication: BLOOD PRESSURE INCREASED
     Route: 048

REACTIONS (9)
  - FEELING JITTERY [None]
  - INSOMNIA [None]
  - ASTHENIA [None]
  - DECREASED APPETITE [None]
  - HYPERHIDROSIS [None]
  - COLD SWEAT [None]
  - TREMOR [None]
  - DISTURBANCE IN ATTENTION [None]
  - FATIGUE [None]
